FAERS Safety Report 10089768 (Version 1)
Quarter: 2014Q2

REPORT INFORMATION
  Report Type: Spontaneous
  Country: US (occurrence: US)
  Receive Date: 20140421
  Receipt Date: 20140421
  Transmission Date: 20141212
  Serious: No
  Sender: FDA-Public Use
  Company Number: US-PFIZER INC-2014110494

PATIENT
  Age: 64 Year
  Sex: Male
  Weight: 90.7 kg

DRUGS (2)
  1. SKELAXIN [Suspect]
     Dosage: UNK
  2. LYRICA [Suspect]
     Indication: SPINAL DISORDER
     Dosage: UNK

REACTIONS (2)
  - Spinal disorder [Unknown]
  - Condition aggravated [Unknown]
